FAERS Safety Report 5958340-0 (Version None)
Quarter: 2008Q4

REPORT INFORMATION
  Report Type: 
  Country: None (occurrence: None)
  Receive Date: 20081117
  Receipt Date: 20081117
  Transmission Date: 20090506
  Serious: Yes (Death)
  Sender: FDA-Public Use
  Company Number: None

PATIENT
  Age: 13 Year
  Sex: Male

DRUGS (3)
  1. CONCERTA [Suspect]
  2. RITALIN [Suspect]
  3. NUTROPIN [Concomitant]

REACTIONS (4)
  - FATIGUE [None]
  - RETCHING [None]
  - SUDDEN DEATH [None]
  - VOMITING [None]
